FAERS Safety Report 24632024 (Version 4)
Quarter: 2025Q1

REPORT INFORMATION
  Report Type: Spontaneous
  Country: US (occurrence: US)
  Receive Date: 20241118
  Receipt Date: 20250314
  Transmission Date: 20250408
  Serious: No
  Sender: PFIZER
  Company Number: US-PFIZER INC-202400302259

PATIENT
  Age: 70 Year
  Sex: Female

DRUGS (2)
  1. CIBINQO [Suspect]
     Active Substance: ABROCITINIB
  2. CIBINQO [Suspect]
     Active Substance: ABROCITINIB

REACTIONS (3)
  - Pain [Unknown]
  - Skin disorder [Unknown]
  - Drug ineffective [Unknown]
